FAERS Safety Report 6618759-1 (Version None)
Quarter: 2010Q1

REPORT INFORMATION
  Report Type: 
  Country: None (occurrence: None)
  Receive Date: 20100308
  Receipt Date: 20100222
  Transmission Date: 20100710
  Serious: Yes (Hospitalization)
  Sender: FDA-Public Use
  Company Number: FR-TEVA-226238ISR

PATIENT
  Sex: Male

DRUGS (8)
  1. TRAMADOL HCL [Suspect]
     Indication: MUSCULOSKELETAL PAIN
     Route: 048
     Dates: start: 20091028, end: 20091029
  2. FLUINDIONE [Suspect]
     Dates: start: 20060101, end: 20091102
  3. DILTIAZEM HCL [Concomitant]
     Dates: start: 20060101
  4. LANSOPRAZOLE [Concomitant]
     Dates: start: 20060101
  5. MACROGOL [Concomitant]
     Dates: start: 20060101
  6. TRIMEBUTINE [Concomitant]
     Dates: start: 20060101
  7. GLYCERYL TRINITRATE [Concomitant]
     Dates: start: 20060101
  8. FERROUS SULFATE TAB [Concomitant]
     Dates: start: 20060101

REACTIONS (3)
  - DRUG INTERACTION [None]
  - INTERNATIONAL NORMALISED RATIO INCREASED [None]
  - PULMONARY HAEMORRHAGE [None]
